FAERS Safety Report 8258533-6 (Version None)
Quarter: 2012Q2

REPORT INFORMATION
  Report Type: 
  Country: None (occurrence: None)
  Receive Date: 20120404
  Receipt Date: 20120402
  Transmission Date: 20120825
  Serious: Yes (Other)
  Sender: FDA-Public Use
  Company Number: US-JNJFOC-20120311415

PATIENT
  Age: 36 Year
  Sex: Female
  Weight: 99.79 kg

DRUGS (1)
  1. BENADRYL [Suspect]
     Indication: PRODUCT USED FOR UNKNOWN INDICATION
     Dosage: 300 PILLS WEEKLY IN THE BEGINNING AND 700-900 PILLS A WEEK AT THE END
     Route: 048

REACTIONS (4)
  - DRUG ABUSE [None]
  - HALLUCINATION [None]
  - OVERDOSE [None]
  - HYPERSOMNIA [None]
